FAERS Safety Report 10221465 (Version 1)
Quarter: 2014Q2

REPORT INFORMATION
  Report Type: Spontaneous
  Country: US (occurrence: None)
  Receive Date: 20140605
  Receipt Date: 20140605
  Transmission Date: 20141212
  Serious: No
  Sender: FDA-Public Use
  Company Number: None

PATIENT
  Age: 85 Year
  Sex: Female

DRUGS (3)
  1. AFINITOR [Suspect]
     Indication: RECTAL CANCER
     Dosage: 5 MG EVERY 3 DAYS ORAL
     Route: 048
     Dates: start: 20140122
  2. AFINITOR [Suspect]
     Indication: ANAEMIA
     Dosage: 5 MG EVERY 3 DAYS ORAL
     Route: 048
     Dates: start: 20140122
  3. AFINITOR [Suspect]
     Indication: RENAL FAILURE CHRONIC
     Dosage: 5 MG EVERY 3 DAYS ORAL
     Route: 048
     Dates: start: 20140122

REACTIONS (8)
  - Peripheral swelling [None]
  - Oedema [None]
  - Pain in extremity [None]
  - Skin discolouration [None]
  - Vulvovaginal swelling [None]
  - Skin papilloma [None]
  - Myalgia [None]
  - Dyspnoea [None]
